FAERS Safety Report 4957240-2 (Version None)
Quarter: 2006Q1

REPORT INFORMATION
  Report Type: 
  Country: None (occurrence: None)
  Receive Date: 20060329
  Receipt Date: 20050301
  Transmission Date: 20060701
  Serious: Yes (Hospitalization, Other)
  Sender: FDA-Public Use
  Company Number: DE-MERCK-0603USA04017

PATIENT
  Sex: Male

DRUGS (21)
  1. SUSTIVA [Suspect]
     Indication: HIV INFECTION
     Route: 065
     Dates: start: 20000101, end: 20040901
  2. CRIXIVAN [Suspect]
     Route: 048
  3. CRIXIVAN [Suspect]
     Route: 048
     Dates: start: 19970101
  4. VIDEX [Suspect]
     Indication: HIV INFECTION
     Route: 065
     Dates: start: 19970101
  5. ZERIT [Concomitant]
     Indication: HIV INFECTION
     Route: 065
     Dates: start: 20000101
  6. REYATAZ [Suspect]
     Indication: HIV INFECTION
     Route: 065
     Dates: start: 20041001
  7. ZIDOVUDINE [Concomitant]
     Indication: HIV INFECTION
     Route: 065
     Dates: start: 19980101
  8. LAMIVUDINE [Suspect]
     Indication: HIV INFECTION
     Route: 065
     Dates: start: 20000101, end: 20040901
  9. NELFINAVIR MESYLATE [Suspect]
     Indication: HIV INFECTION
     Route: 065
     Dates: start: 20000101
  10. LOPINAVIR [Concomitant]
     Indication: HIV INFECTION
     Route: 065
     Dates: start: 20020101, end: 20030101
  11. AMPRENAVIR [Suspect]
     Indication: HIV INFECTION
     Route: 065
     Dates: start: 20020101, end: 20030101
  12. RITONAVIR [Concomitant]
     Indication: HIV INFECTION
     Route: 065
     Dates: start: 20020101
  13. TENOFOVIR [Concomitant]
     Indication: HIV INFECTION
     Route: 065
     Dates: start: 20030101, end: 20040901
  14. ENFUVIRTIDE [Suspect]
     Indication: HIV INFECTION
     Route: 065
     Dates: start: 20030901
  15. SAQUINAVIR [Concomitant]
     Indication: HIV INFECTION
     Route: 065
     Dates: start: 20041001
  16. [THERAPY UNSPECIFIED] [Suspect]
     Indication: HIV INFECTION
     Route: 065
     Dates: start: 20020101, end: 20030101
  17. METOPROLOL [Concomitant]
     Route: 065
  18. RAMIPRIL [Concomitant]
     Route: 065
  19. ASPIRIN [Concomitant]
     Route: 065
  20. FOSAMAX [Concomitant]
     Route: 065
  21. SULFAMETHOXAZOLE AND TRIMETHOPRIM [Concomitant]
     Route: 065

REACTIONS (9)
  - ACUTE CORONARY SYNDROME [None]
  - ANGINA PECTORIS [None]
  - DRUG RESISTANCE [None]
  - ERECTILE DYSFUNCTION [None]
  - HEPATITIS B [None]
  - HERPES SIMPLEX [None]
  - LYMPHADENOPATHY [None]
  - PSORIASIS [None]
  - PYREXIA [None]
